FAERS Safety Report 6917647-0 (Version None)
Quarter: 2010Q3

REPORT INFORMATION
  Report Type: 
  Country: None (occurrence: None)
  Receive Date: 20100810
  Receipt Date: 20080410
  Transmission Date: 20110219
  Serious: No
  Sender: FDA-Public Use
  Company Number: US-WYE-H03561808

PATIENT

DRUGS (1)
  1. PROTONIX [Suspect]
     Dosage: 80 MG/100ML NS AT 8 MG/HR CONTINUOUS INFUSION
     Route: 042
     Dates: start: 20080101

REACTIONS (2)
  - INFUSION SITE EXTRAVASATION [None]
  - INFUSION SITE PAIN [None]
